FAERS Safety Report 20867896 (Version 4)
Quarter: 2022Q3

REPORT INFORMATION
  Report Type: Spontaneous
  Country: CN (occurrence: CN)
  Receive Date: 20220524
  Receipt Date: 20220805
  Transmission Date: 20221026
  Serious: Yes (Hospitalization, Other)
  Sender: FDA-Public Use
  Company Number: CN-JNJFOC-20220531508

PATIENT
  Age: 48 Year
  Sex: Male
  Weight: 50 kg

DRUGS (16)
  1. TREMFYA [Suspect]
     Active Substance: GUSELKUMAB
     Indication: Psoriasis
     Route: 065
     Dates: start: 20220328
  2. TREMFYA [Suspect]
     Active Substance: GUSELKUMAB
  3. TREMFYA [Suspect]
     Active Substance: GUSELKUMAB
     Indication: Psoriasis
     Route: 065
  4. SODIUM CHLORIDE [Concomitant]
     Active Substance: SODIUM CHLORIDE
  5. PENTOXIFYLLINE [Concomitant]
     Active Substance: PENTOXIFYLLINE
  6. METHYLPREDNISOLONE [Concomitant]
     Active Substance: METHYLPREDNISOLONE
  7. CYANOCOBALAMIN [Concomitant]
     Active Substance: CYANOCOBALAMIN
  8. AMLODIPINE BESYLATE [Concomitant]
     Active Substance: AMLODIPINE BESYLATE
     Route: 048
  9. GLUTATHIONE [Concomitant]
     Active Substance: GLUTATHIONE
  10. THIAMINE HYDROCHLORIDE [Concomitant]
     Active Substance: THIAMINE HYDROCHLORIDE
  11. GLICLAZIDE [Concomitant]
     Active Substance: GLICLAZIDE
     Route: 048
  12. GLYCYRRHIZIN [Concomitant]
     Active Substance: GLYCYRRHIZIN
  13. CHLORPHENIRAMINE MALEATE [Concomitant]
     Active Substance: CHLORPHENIRAMINE MALEATE
  14. IRBESARTAN [Concomitant]
     Active Substance: IRBESARTAN
     Route: 048
  15. ATORVASTATIN CALCIUM [Concomitant]
     Active Substance: ATORVASTATIN CALCIUM
     Route: 048
  16. METFORMIN [Concomitant]
     Active Substance: METFORMIN HYDROCHLORIDE
     Route: 048

REACTIONS (11)
  - Weight decreased [Unknown]
  - Bone pain [Recovering/Resolving]
  - Decreased appetite [Unknown]
  - Upper respiratory tract infection [Unknown]
  - Asthenia [Unknown]
  - Hepatitis C [Recovered/Resolved]
  - Hepatitis B [Not Recovered/Not Resolved]
  - Lacunar infarction [Unknown]
  - Myalgia [Not Recovered/Not Resolved]
  - Insomnia [Unknown]
  - Eye pain [Unknown]

NARRATIVE: CASE EVENT DATE: 20220101
